FAERS Safety Report 18128197 (Version 9)
Quarter: 2022Q1

REPORT INFORMATION
  Report Type: Report from Study
  Country: US (occurrence: US)
  Receive Date: 20200810
  Receipt Date: 20220203
  Transmission Date: 20220424
  Serious: Yes (Hospitalization, Other)
  Sender: FDA-Public Use
  Company Number: US-BIOVITRUM-2020US4124

PATIENT
  Sex: Male

DRUGS (2)
  1. KINERET [Suspect]
     Active Substance: ANAKINRA
     Indication: Rheumatoid arthritis
     Route: 058
     Dates: start: 20190403
  2. KINERET [Suspect]
     Active Substance: ANAKINRA
     Route: 058
     Dates: start: 20190403

REACTIONS (19)
  - COVID-19 [Recovering/Resolving]
  - Rheumatoid arthritis [Unknown]
  - Atelectasis [Unknown]
  - Memory impairment [Not Recovered/Not Resolved]
  - Balance disorder [Unknown]
  - Weight decreased [Unknown]
  - Blood glucose abnormal [Unknown]
  - Irritable bowel syndrome [Unknown]
  - Chest pain [Unknown]
  - Nausea [Unknown]
  - Electrocardiogram abnormal [Unknown]
  - Blood pressure increased [Unknown]
  - Influenza [Unknown]
  - Cognitive disorder [Unknown]
  - Glycosylated haemoglobin decreased [Unknown]
  - Nodule [Unknown]
  - Pain [Unknown]
  - Memory impairment [Unknown]
  - Product dose omission issue [Unknown]
